FAERS Safety Report 4398799-6 (Version None)
Quarter: 2004Q3

REPORT INFORMATION
  Report Type: 
  Country: None (occurrence: None)
  Receive Date: 20040712
  Receipt Date: 20040701
  Transmission Date: 20050211
  Serious: Yes (Hospitalization)
  Sender: FDA-Public Use
  Company Number: 2004-BP-05243RO

PATIENT
  Age: 62 Year
  Sex: Male

DRUGS (9)
  1. PREDNISONE TAB [Suspect]
     Indication: MANTLE CELL LYMPHOMA
     Dosage: 100 MG/DAY FOR 5 DAYS (R-CHOP 1 CYCLE EVERY 21 DAYS) PO
     Route: 048
     Dates: start: 20030318
  2. GENASENSE [Suspect]
     Indication: MANTLE CELL LYMPHOMA
     Dosage: 3 MG/KG/DAY (7 DAY CYCLE EVERY 21 DAYS) IV
     Route: 042
     Dates: start: 20030108
  3. RITUXIMAB (RITUXIMAB) [Suspect]
     Indication: MANTLE CELL LYMPHOMA
     Dosage: 375 MG/M2 (R-CHOP 1 CYCLE EVERY 21 DAYS), IV
     Route: 042
     Dates: start: 20030318
  4. CYCLOPHOSPHAMIDE [Suspect]
     Indication: MANTLE CELL LYMPHOMA
     Dosage: 750 MG/M2 (R-CHOP 1 CYCLE EVERY 21 DAYS) IV
     Route: 042
     Dates: start: 20030318
  5. DOXORUBICIN HCL [Suspect]
     Indication: MANTLE CELL LYMPHOMA
     Dosage: 50 MG/M2 (R-CHOP 1 CYCLE EVERY 21 DAYS) IV
     Route: 042
     Dates: start: 20030318
  6. VINCRISTINE [Suspect]
     Indication: MANTLE CELL LYMPHOMA
     Dosage: 1.4 MG/M2 (R-CHOP 1 CYCLE EVERY 21 DAYS) IV
     Route: 042
     Dates: start: 20030318
  7. ACETYLSALICYLIC ACID SRT [Concomitant]
  8. PANTOPRAZOLE (PANTOPRAZOLE) [Concomitant]
  9. SIMVASTATIN [Concomitant]

REACTIONS (8)
  - DEHYDRATION [None]
  - DISSEMINATED INTRAVASCULAR COAGULATION [None]
  - ENTEROBACTER SEPSIS [None]
  - FEBRILE NEUTROPENIA [None]
  - HYPOTENSION [None]
  - RENAL FAILURE ACUTE [None]
  - RESPIRATORY RATE INCREASED [None]
  - THROMBOCYTOPENIA [None]
